FAERS Safety Report 8192050 (Version 3)
Quarter: 2014Q1

REPORT INFORMATION
  Report Type: Spontaneous
  Country: US (occurrence: US)
  Receive Date: 20111020
  Receipt Date: 20140127
  Transmission Date: 20141002
  Serious: Yes (Hospitalization, Other)
  Sender: FDA-Public Use
  Company Number: US-BAYER-2011-100750

PATIENT
  Age: 17 Year
  Sex: Female
  Weight: 74.83 kg

DRUGS (9)
  1. YAZ [Suspect]
     Dosage: UNK
     Dates: start: 201010, end: 201107
  2. GIANVI [Suspect]
     Indication: CONTRACEPTION
     Dosage: UNK
     Dates: start: 201010, end: 201107
  3. GIANVI [Suspect]
     Indication: PREMENSTRUAL SYNDROME
  4. GIANVI [Suspect]
     Indication: MENORRHAGIA
  5. ADVIL [Concomitant]
     Indication: HEADACHE
  6. FISH OIL [Concomitant]
     Dosage: 2 TABLETS DAILY
  7. ROLAIDS [CALCIUM CARBONATE,MAGNESIUM HYDROXIDE] [Concomitant]
  8. LOESTRIN 1.5/30-21 [Concomitant]
     Dosage: 20 MCG-1 MG TABLET DAILY
     Dates: start: 20110718
  9. ZANTAC [Concomitant]

REACTIONS (8)
  - Gallbladder disorder [None]
  - Cholecystitis chronic [None]
  - Biliary dyskinesia [None]
  - Abdominal pain upper [None]
  - Injury [None]
  - Pain [None]
  - Emotional distress [None]
  - Anxiety [None]
